FAERS Safety Report 9135633 (Version 2)
Quarter: 2013Q2

REPORT INFORMATION
  Report Type: Spontaneous
  Country: FR (occurrence: FR)
  Receive Date: 20130304
  Receipt Date: 20130507
  Transmission Date: 20140414
  Serious: Yes (Other)
  Sender: FDA-Public Use
  Company Number: PHHY2013FR018754

PATIENT
  Age: 60 Year
  Sex: Female
  Weight: 103 kg

DRUGS (1)
  1. DOCETAXEL [Suspect]
     Indication: BREAST CANCER
     Dosage: 200 MG

REACTIONS (16)
  - Renal failure acute [Unknown]
  - Respiratory alkalosis [Recovering/Resolving]
  - Septic shock [Recovering/Resolving]
  - Circulatory collapse [Recovered/Resolved]
  - Agitation [Recovering/Resolving]
  - Neutropenic colitis [Recovering/Resolving]
  - Abdominal pain [Recovering/Resolving]
  - Diarrhoea [Recovering/Resolving]
  - Vomiting [Recovering/Resolving]
  - Pyrexia [Recovered/Resolved]
  - Leukopenia [Recovering/Resolving]
  - Abdominal rigidity [Recovering/Resolving]
  - Dehydration [Recovering/Resolving]
  - General physical health deterioration [Recovering/Resolving]
  - Tachycardia [Recovering/Resolving]
  - Oliguria [Recovering/Resolving]
